FAERS Safety Report 15160966 (Version 1)
Quarter: 2018Q3

REPORT INFORMATION
  Report Type: Spontaneous
  Country: US (occurrence: US)
  Receive Date: 20180718
  Receipt Date: 20180718
  Transmission Date: 20181010
  Serious: No
  Sender: FDA-Public Use
  Company Number: US-BIOMARINAP-US-2018-118913

PATIENT
  Age: 21 Year
  Sex: Female

DRUGS (3)
  1. ALDURAZYME [Suspect]
     Active Substance: LARONIDASE
     Dosage: 0.58 MG, QW
     Route: 041
     Dates: start: 20180615
  2. ALDURAZYME [Suspect]
     Active Substance: LARONIDASE
     Indication: MUCOPOLYSACCHARIDOSIS I
     Dosage: 0.58 MG/KG, QW
     Route: 041
     Dates: start: 20050615
  3. ALDURAZYME [Suspect]
     Active Substance: LARONIDASE
     Dosage: 0.58 MG/KG, QW
     Route: 041
     Dates: end: 20180413

REACTIONS (1)
  - Exposure during pregnancy [Unknown]
